FAERS Safety Report 14941072 (Version 7)
Quarter: 2019Q1

REPORT INFORMATION
  Report Type: Spontaneous
  Country: GB (occurrence: GB)
  Receive Date: 20180525
  Receipt Date: 20190314
  Transmission Date: 20190417
  Serious: Yes (Other)
  Sender: FDA-Public Use
  Company Number: GB-PFIZER INC-2018210005

PATIENT
  Age: 49 Year
  Sex: Male

DRUGS (2)
  1. FEMODENE [Suspect]
     Active Substance: ETHINYL ESTRADIOL\GESTODENE
     Indication: TRANSGENDER HORMONAL THERAPY
     Dosage: UNK
  2. PREMARIN [Suspect]
     Active Substance: ESTROGENS, CONJUGATED
     Indication: TRANSGENDER HORMONAL THERAPY
     Dosage: UNK

REACTIONS (11)
  - Raynaud^s phenomenon [Unknown]
  - Rheumatoid arthritis [Recovering/Resolving]
  - Skin ulcer [Unknown]
  - Interstitial lung disease [Unknown]
  - Gastrooesophageal reflux disease [Unknown]
  - Product use issue [Unknown]
  - Dysphagia [Unknown]
  - Scleroderma [Recovering/Resolving]
  - Overlap syndrome [Recovering/Resolving]
  - Pulmonary fibrosis [Unknown]
  - Arthritis [Unknown]
